FAERS Safety Report 5235982-1 (Version None)
Quarter: 2007Q1

REPORT INFORMATION
  Report Type: 
  Country: None (occurrence: None)
  Receive Date: 20070212
  Receipt Date: 20070129
  Transmission Date: 20070707
  Serious: Yes (Hospitalization, Disabling, Other)
  Sender: FDA-Public Use
  Company Number: DE-ELI_LILLY_AND_COMPANY-DE200612001372

PATIENT
  Age: 52 Year
  Sex: Female
  Weight: 48 kg

DRUGS (13)
  1. PEMETREXED [Suspect]
     Indication: BREAST CANCER
     Dosage: 888 MG, UNK
     Dates: start: 20060828
  2. PEMETREXED [Suspect]
     Dosage: 657 MG, UNK
     Dates: start: 20061017
  3. CARBOPLATIN [Suspect]
     Indication: BREAST CANCER
     Dosage: 553 MG, UNK
     Dates: start: 20060828
  4. CARBOPLATIN [Suspect]
     Dosage: 435 MG, UNK
     Dates: start: 20061017
  5. LAFOL [Concomitant]
     Indication: PROPHYLAXIS
     Dates: start: 20060824
  6. DEXAMETHASONE [Concomitant]
     Indication: PROPHYLAXIS
     Dates: start: 20061016, end: 20061018
  7. PREGABALIN [Concomitant]
     Indication: PAIN
     Dosage: 75 MG, 3/D
     Dates: start: 20060928
  8. COMBAREN [Concomitant]
     Indication: PAIN
     Dosage: UNK, 2/D
     Dates: start: 20060928
  9. VALORON [Concomitant]
     Indication: PAIN
     Dosage: 100 UNK, 2/D
     Dates: start: 20060928
  10. EMEND    /USA/ [Concomitant]
     Indication: VOMITING
     Dosage: 125 MG, UNK
     Dates: start: 20061017
  11. EMEND    /USA/ [Concomitant]
     Dosage: 80 MG, UNK
     Dates: start: 20061018, end: 20061019
  12. TRAMAL    /GFR/ [Concomitant]
     Dosage: 100 MG, 2/D
     Dates: start: 20060928
  13. NEXIUM [Concomitant]
     Indication: PROPHYLAXIS
     Dosage: 20 MG, 2/D
     Dates: start: 20060928

REACTIONS (6)
  - DIPLOPIA [None]
  - METASTASES TO MENINGES [None]
  - PANCYTOPENIA [None]
  - PLEURAL EFFUSION [None]
  - PUPILS UNEQUAL [None]
  - THROMBOCYTOPENIA [None]
